FAERS Safety Report 21133361 (Version 1)
Quarter: 2022Q3

REPORT INFORMATION
  Report Type: Spontaneous
  Country: US (occurrence: US)
  Receive Date: 20220726
  Receipt Date: 20220726
  Transmission Date: 20221027
  Serious: Yes (Hospitalization, Other)
  Sender: FDA-Public Use
  Company Number: US-PERRIGO-22US010140

PATIENT
  Age: 58 Year
  Sex: Female

DRUGS (15)
  1. FERROUS SULFATE [Suspect]
     Active Substance: FERROUS SULFATE
     Indication: Product used for unknown indication
     Dosage: 325 MG, UNK
     Route: 048
  2. RITUXIMAB [Suspect]
     Active Substance: RITUXIMAB
     Indication: Product used for unknown indication
     Dosage: UNKNOWN, UNKNOWN
     Route: 065
  3. OMEPRAZOLE [Suspect]
     Active Substance: OMEPRAZOLE
     Indication: Product used for unknown indication
     Dosage: 40 MG, UNKNOWN
     Route: 065
  4. METOPROLOL TARTRATE [Suspect]
     Active Substance: METOPROLOL TARTRATE
     Indication: Product used for unknown indication
     Dosage: 50 MG, UNKNOWN
     Route: 065
  5. HYDROCHLOROTHIAZIDE [Suspect]
     Active Substance: HYDROCHLOROTHIAZIDE
     Indication: Product used for unknown indication
     Dosage: 50 MG, UNKNOWN
     Route: 065
  6. PREDNISONE [Suspect]
     Active Substance: PREDNISONE
     Indication: Product used for unknown indication
     Dosage: 10 MG, UNKNOWN
     Route: 065
     Dates: start: 20220421
  7. MYCOPHENOLATE MOFETIL [Suspect]
     Active Substance: MYCOPHENOLATE MOFETIL
     Indication: Product used for unknown indication
     Dosage: ONE, BID
     Route: 065
     Dates: start: 20220421
  8. IMURAN [Suspect]
     Active Substance: AZATHIOPRINE
     Indication: Product used for unknown indication
     Dosage: UNKNOWN, UNKNOWN
     Route: 065
  9. DEPO-MEDROL [Suspect]
     Active Substance: METHYLPREDNISOLONE ACETATE
     Indication: Product used for unknown indication
     Dosage: UNKNOWN, UNKNOWN
     Route: 065
  10. PLAQUENIL [Suspect]
     Active Substance: HYDROXYCHLOROQUINE SULFATE
     Indication: Product used for unknown indication
     Dosage: UNKNOWN, UNKNOWN
     Route: 065
  11. HYDROXYCHLOROQUINE [Suspect]
     Active Substance: HYDROXYCHLOROQUINE
     Indication: Product used for unknown indication
     Dosage: UNKNOWN, UNKNOWN
     Route: 065
  12. AZATHIOPRINE [Suspect]
     Active Substance: AZATHIOPRINE
     Indication: Product used for unknown indication
     Dosage: UNKNOWN, UNKNOWN
     Route: 065
  13. RITUXAN [Suspect]
     Active Substance: RITUXIMAB
     Indication: Product used for unknown indication
     Dosage: UNKNOWN, UNKNOWN
     Route: 065
  14. ALBUTEROL [Suspect]
     Active Substance: ALBUTEROL
     Indication: Product used for unknown indication
     Dosage: UNKNOWN, UNKNOWN
     Route: 065
  15. PRED FORTE [Suspect]
     Active Substance: PREDNISOLONE ACETATE
     Indication: Product used for unknown indication
     Dosage: UNKNOWN, UNKNOWN
     Route: 065

REACTIONS (44)
  - Anti-neutrophil cytoplasmic antibody positive vasculitis [Unknown]
  - Scleroderma [Unknown]
  - Peptic ulcer [Unknown]
  - Sclerodactylia [Unknown]
  - Rheumatoid arthritis [Unknown]
  - Interstitial lung disease [Unknown]
  - Barrett^s oesophagus [Unknown]
  - Bronchiectasis [Unknown]
  - Herpes zoster [Unknown]
  - Pulmonary fibrosis [Unknown]
  - Scleritis [Unknown]
  - Ocular hyperaemia [Unknown]
  - Fibrosis [Unknown]
  - Antineutrophil cytoplasmic antibody [Unknown]
  - Gastrooesophageal reflux disease [Unknown]
  - Peripheral swelling [Unknown]
  - Rheumatic disorder [Unknown]
  - Pain in extremity [Unknown]
  - Pain [Unknown]
  - Abdominal pain [Unknown]
  - Constipation [Unknown]
  - Dyspnoea [Unknown]
  - Dyspepsia [Unknown]
  - Arthralgia [Unknown]
  - Raynaud^s phenomenon [Unknown]
  - Asthma [Unknown]
  - Balance disorder [Unknown]
  - Nausea [Unknown]
  - Myalgia [Unknown]
  - Skin hypertrophy [Unknown]
  - Arthritis [Unknown]
  - Eye pain [Unknown]
  - Weight decreased [Unknown]
  - Fibromyalgia [Unknown]
  - Diverticulum [Unknown]
  - Cough [Unknown]
  - Tachycardia [Unknown]
  - Microscopic polyangiitis [Unknown]
  - Emphysema [Unknown]
  - Foreign body in throat [Unknown]
  - Nose deformity [Unknown]
  - Chest X-ray abnormal [Unknown]
  - Abdominal pain upper [Unknown]
  - Condition aggravated [Unknown]
